FAERS Safety Report 20416656 (Version 4)
Quarter: 2023Q4

REPORT INFORMATION
  Report Type: Spontaneous
  Country: US (occurrence: US)
  Receive Date: 20220202
  Receipt Date: 20231228
  Transmission Date: 20240110
  Serious: No
  Sender: FDA-Public Use
  Company Number: US-GLAXOSMITHKLINE-US2022AMR016244

PATIENT
  Sex: Female

DRUGS (3)
  1. ZEJULA [Suspect]
     Active Substance: NIRAPARIB
     Indication: Ovarian cancer
     Dosage: 200 MG, QD
  2. ZEJULA [Suspect]
     Active Substance: NIRAPARIB
     Indication: Ovarian cancer
     Dosage: 200 MG, QD
  3. ZEJULA [Suspect]
     Active Substance: NIRAPARIB
     Dosage: UNK (HALF OF 200 MG TAB)

REACTIONS (7)
  - Coronavirus infection [Unknown]
  - Productive cough [Not Recovered/Not Resolved]
  - Feeling cold [Unknown]
  - Osteoporosis [Unknown]
  - Nasopharyngitis [Unknown]
  - Laboratory test abnormal [Unknown]
  - Intentional product use issue [Unknown]
